FAERS Safety Report 7943827-1 (Version None)
Quarter: 2011Q4

REPORT INFORMATION
  Report Type: 
  Country: None (occurrence: None)
  Receive Date: 20111128
  Receipt Date: 20111123
  Transmission Date: 20120403
  Serious: Yes (Hospitalization)
  Sender: FDA-Public Use
  Company Number: RU-ROCHE-1012680

PATIENT
  Sex: Female
  Weight: 94.4 kg

DRUGS (2)
  1. ACTEMRA [Suspect]
     Indication: RHEUMATOID ARTHRITIS
     Route: 058
     Dates: start: 20110614
  2. ACTEMRA [Suspect]
     Route: 042
     Dates: start: 20110614

REACTIONS (1)
  - RETINAL ARTERY OCCLUSION [None]
